FAERS Safety Report 4785855-3 (Version None)
Quarter: 2005Q3

REPORT INFORMATION
  Report Type: 
  Country: None (occurrence: None)
  Receive Date: 20050929
  Receipt Date: 20050916
  Transmission Date: 20060218
  Serious: Yes (Disabling)
  Sender: FDA-Public Use
  Company Number: 2005132198

PATIENT
  Age: 43 Year
  Sex: Female
  Weight: 190.5108 kg

DRUGS (12)
  1. CELEBREX [Suspect]
     Indication: ARTHRITIS
     Dosage: 200 MG (200 MG, 1 IN 1 D), ORAL
     Route: 048
     Dates: start: 20030101
  2. CELEBREX [Suspect]
     Indication: EXOSTOSIS
     Dosage: 200 MG (200 MG, 1 IN 1 D), ORAL
     Route: 048
     Dates: start: 20030101
  3. ALBUTEROL [Concomitant]
  4. SYNTHROID [Concomitant]
  5. LANTUS [Concomitant]
  6. CELEXA [Concomitant]
  7. AMITRIPTYLINE HCL [Concomitant]
  8. ALPRAZOLAM [Concomitant]
  9. AVANDAMET (METFORMIN HYDROCHLORIDE, ROSIGLITAZONE) [Concomitant]
  10. SIL-NORBORAL (GLIBENCLAMIDE, METFORMIN) [Concomitant]
  11. ALTACE [Concomitant]
  12. HISTINEX HC (CHLLORPHENAMINE MALEATE, HYDROCODONE BITARTRATE, PHENYLEP [Concomitant]

REACTIONS (2)
  - ASTHMA [None]
  - ECONOMIC PROBLEM [None]
